FAERS Safety Report 24781122 (Version 2)
Quarter: 2025Q3

REPORT INFORMATION
  Report Type: Spontaneous
  Country: US (occurrence: US)
  Receive Date: 20241227
  Receipt Date: 20250803
  Transmission Date: 20251020
  Serious: Yes (Other)
  Sender: ALEXION PHARMACEUTICALS
  Company Number: US-ASTRAZENECA-202412USA015327US

PATIENT
  Age: 75 Year
  Sex: Male

DRUGS (3)
  1. DAPAGLIFLOZIN [Suspect]
     Active Substance: DAPAGLIFLOZIN
     Route: 065
  2. APIXABAN [Suspect]
     Active Substance: APIXABAN
     Route: 065
  3. DIGOXIN [Suspect]
     Active Substance: DIGOXIN
     Route: 065

REACTIONS (4)
  - Overdose [Unknown]
  - Ventricular tachycardia [Unknown]
  - Nausea [Unknown]
  - Vomiting [Unknown]
